FAERS Safety Report 5454186-0 (Version None)
Quarter: 2007Q3

REPORT INFORMATION
  Report Type: 
  Country: None (occurrence: None)
  Receive Date: 20070917
  Receipt Date: 20070330
  Transmission Date: 20080115
  Serious: Yes (Hospitalization, Other)
  Sender: FDA-Public Use
  Company Number: US-ASTRAZENECA-2006UW11067

PATIENT
  Age: 45 Year
  Sex: Female
  Weight: 54.5 kg

DRUGS (7)
  1. SEROQUEL [Suspect]
     Indication: BIPOLAR DISORDER
     Dosage: 100-200MG
     Route: 048
     Dates: start: 20020101
  2. ABILIFY [Concomitant]
  3. HALDOL [Concomitant]
  4. RISPERDAL [Concomitant]
     Dates: start: 20030101
  5. TRILAFON [Concomitant]
  6. ZYPREXA [Concomitant]
  7. PAXIL [Concomitant]
     Dates: start: 20030101

REACTIONS (1)
  - PANCREATITIS [None]
